FAERS Safety Report 6189222-X (Version None)
Quarter: 2009Q2

REPORT INFORMATION
  Report Type: 
  Country: None (occurrence: None)
  Receive Date: 20090512
  Receipt Date: 20090506
  Transmission Date: 20091009
  Serious: Yes (Death, Life-Threatening, Hospitalization, Other)
  Sender: FDA-Public Use
  Company Number: 2008SP025121

PATIENT
  Age: 53 Year
  Sex: Male
  Weight: 71.8951 kg

DRUGS (3)
  1. PEGETRON          (PEGINTERFERON ALFA-2B W/RIBAVIRIN) [Suspect]
     Indication: HEPATITIS C
     Dosage: 100 MCG;QW;SC; 1000 MG;QD;PO
     Route: 058
     Dates: start: 20080204, end: 20081208
  2. PEGETRON          (PEGINTERFERON ALFA-2B W/RIBAVIRIN) [Suspect]
     Indication: HEPATITIS C
     Dosage: 100 MCG;QW;SC; 1000 MG;QD;PO
     Route: 058
     Dates: start: 20080204, end: 20081208
  3. FOLIC ACID [Concomitant]

REACTIONS (9)
  - BLOOD BILIRUBIN INCREASED [None]
  - DIALYSIS [None]
  - HAEMOPHILUS INFECTION [None]
  - LOSS OF CONSCIOUSNESS [None]
  - MULTI-ORGAN FAILURE [None]
  - NEUTROPENIA [None]
  - RENAL FAILURE ACUTE [None]
  - STAPHYLOCOCCAL SEPSIS [None]
  - THROMBOCYTOPENIA [None]
